FAERS Safety Report 9097697 (Version 1)
Quarter: 2013Q1

REPORT INFORMATION
  Report Type: Spontaneous
  Country: AU (occurrence: AU)
  Receive Date: 20130212
  Receipt Date: 20130212
  Transmission Date: 20140127
  Serious: Yes (Other)
  Sender: FDA-Public Use
  Company Number: PHHY2012AU101246

PATIENT
  Age: 30 Year
  Sex: Female

DRUGS (2)
  1. GLIVEC [Suspect]
     Indication: GRAFT VERSUS HOST DISEASE IN SKIN
     Dosage: 200 MG, UNK
     Route: 048
     Dates: end: 20121103
  2. MYCOPHENOLATE [Concomitant]
     Dosage: 1 G, BD
     Route: 048
     Dates: start: 201201

REACTIONS (3)
  - Graft versus host disease in skin [Unknown]
  - Disease progression [Unknown]
  - Scleroderma [Not Recovered/Not Resolved]
